FAERS Safety Report 10755195 (Version 1)
Quarter: 2015Q1

REPORT INFORMATION
  Report Type: Spontaneous
  Country: US (occurrence: None)
  Receive Date: 20150123
  Receipt Date: 20150123
  Transmission Date: 20150721
  Serious: Yes (Other)
  Sender: FDA-Public Use
  Company Number: TAP2006Q01663

PATIENT
  Age: 60 Year
  Sex: Female
  Weight: 73.6 kg

DRUGS (4)
  1. OGEN (ESTROPIPRATE) [Concomitant]
  2. SYNTHROID [Concomitant]
     Active Substance: LEVOTHYROXINE SODIUM
  3. PROVERA [Concomitant]
     Active Substance: MEDROXYPROGESTERONE ACETATE
  4. PREVACID [Suspect]
     Active Substance: LANSOPRAZOLE
     Indication: EROSIVE OESOPHAGITIS
     Route: 048
     Dates: start: 20060913, end: 20060916

REACTIONS (5)
  - Choking sensation [None]
  - Dry mouth [None]
  - Glossodynia [None]
  - Dry eye [None]
  - Dysphagia [None]

NARRATIVE: CASE EVENT DATE: 20060913
